FAERS Safety Report 18264939 (Version 1)
Quarter: 2020Q3

REPORT INFORMATION
  Report Type: Spontaneous
  Country: ES (occurrence: ES)
  Receive Date: 20200914
  Receipt Date: 20200914
  Transmission Date: 20201103
  Serious: Yes (Disabling)
  Sender: FDA-Public Use
  Company Number: ES-MYLANLABS-2020M1077619

PATIENT
  Age: 5 Year
  Sex: Male
  Weight: 17.8 kg

DRUGS (1)
  1. ONDANSETRON [Suspect]
     Active Substance: ONDANSETRON
     Indication: HYPEREMESIS GRAVIDARUM
     Dosage: UNK UNK, Q8H
     Route: 064
     Dates: start: 20140925, end: 20150629

REACTIONS (3)
  - Foetal exposure during pregnancy [Recovered/Resolved]
  - Developmental delay [Not Recovered/Not Resolved]
  - Embryonal rhabdomyosarcoma [Recovered/Resolved]

NARRATIVE: CASE EVENT DATE: 20140925
